FAERS Safety Report 14593592 (Version 1)
Quarter: 2018Q1

REPORT INFORMATION
  Report Type: Spontaneous
  Country: US (occurrence: US)
  Receive Date: 20180302
  Receipt Date: 20180302
  Transmission Date: 20180509
  Serious: Yes (Hospitalization)
  Sender: FDA-Public Use
  Company Number: None

PATIENT
  Age: 60 Year
  Sex: Female
  Weight: 88.6 kg

DRUGS (1)
  1. DAPTOMYCIN 500MG HOSPIRA [Suspect]
     Active Substance: DAPTOMYCIN
     Indication: OSTEOMYELITIS
     Route: 042
     Dates: start: 20180224, end: 20180224

REACTIONS (2)
  - Blood pressure increased [None]
  - Tachycardia [None]

NARRATIVE: CASE EVENT DATE: 20180224
